FAERS Safety Report 22229197 (Version 1)
Quarter: 2023Q2

REPORT INFORMATION
  Report Type: Spontaneous
  Country: DE (occurrence: DE)
  Receive Date: 20230419
  Receipt Date: 20230419
  Transmission Date: 20230722
  Serious: Yes (Other)
  Sender: FDA-Public Use
  Company Number: None

PATIENT
  Age: 20 Year
  Sex: Male

DRUGS (1)
  1. FINGOLIMOD [Suspect]
     Active Substance: FINGOLIMOD
     Indication: Relapsing multiple sclerosis
     Dosage: UNK
     Route: 065

REACTIONS (9)
  - Movement disorder [Unknown]
  - Dysaesthesia [Unknown]
  - Balance disorder [Unknown]
  - Multiple sclerosis [Unknown]
  - Disturbance in attention [Unknown]
  - Rebound effect [Unknown]
  - Fatigue [Unknown]
  - General physical health deterioration [Unknown]
  - JC polyomavirus test positive [Unknown]
